FAERS Safety Report 7957286 (Version 2)
Quarter: 2012Q4

REPORT INFORMATION
  Report Type: 
  Country: US (occurrence: US)
  Receive Date: 20110524
  Receipt Date: 20121226
  Transmission Date: 20130627
  Serious: Yes (Death, Hospitalization, Other)
  Sender: FDA-Public Use
  Company Number: US-ASTRAZENECA-2010SE48032

PATIENT
  Age: 694 Month
  Sex: Female

DRUGS (11)
  1. NEXIUM [Suspect]
     Indication: GASTROOESOPHAGEAL REFLUX DISEASE
     Route: 048
  2. LORTAB [Concomitant]
  3. ZANTAC [Concomitant]
  4. AMBIEN [Concomitant]
  5. ALDACTONE [Concomitant]
  6. INDERAL LA [Concomitant]
  7. NYSTATIN [Concomitant]
  8. PEPCID [Concomitant]
  9. PHENERGAN INJECTION [Concomitant]
  10. PROTONIX [Concomitant]
  11. TALWIN NX [Concomitant]

REACTIONS (28)
  - Alcoholic liver disease [Fatal]
  - Renal failure [Fatal]
  - Ammonia increased [Unknown]
  - Abdominal distension [Unknown]
  - Renal injury [Unknown]
  - Abnormal weight gain [Unknown]
  - Dermatitis [Unknown]
  - Hepatic encephalopathy [Unknown]
  - Hepatorenal failure [Unknown]
  - Listless [Unknown]
  - Asthenia [Unknown]
  - Fatigue [Unknown]
  - Dysstasia [Unknown]
  - Oedema [Unknown]
  - Localised oedema [Unknown]
  - Feeling abnormal [Unknown]
  - Mental status changes [Unknown]
  - Blood creatinine increased [Unknown]
  - Faeces discoloured [Unknown]
  - Pyrexia [Unknown]
  - Haematemesis [Unknown]
  - Chills [Unknown]
  - Asthenia [Unknown]
  - Nausea [Unknown]
  - Confusional state [Unknown]
  - Malaise [Unknown]
  - Abdominal pain [Unknown]
  - Vomiting [Unknown]
